FAERS Safety Report 4453142-9 (Version None)
Quarter: 2004Q3

REPORT INFORMATION
  Report Type: 
  Country: None (occurrence: None)
  Receive Date: 20040812
  Receipt Date: 20040420
  Transmission Date: 20050211
  Serious: No
  Sender: FDA-Public Use
  Company Number: S04-USA-02046-01

PATIENT
  Age: 79 Year
  Sex: Female

DRUGS (11)
  1. NAMENDA [Suspect]
     Indication: PARKINSONISM
     Dosage: 10 MG QD PO
     Route: 048
     Dates: start: 20040406, end: 20040412
  2. NAMENDA [Suspect]
     Indication: PARKINSONISM
     Dosage: 15 MG QD PO
     Route: 048
     Dates: start: 20040413
  3. NAMENDA [Suspect]
     Indication: PARKINSONISM
     Dosage: 5 MG QD PO
     Route: 048
     Dates: start: 20040330, end: 20040405
  4. ZOLOFT [Concomitant]
  5. DITROPAN [Concomitant]
  6. LIPITOR [Concomitant]
  7. REMINYL [Concomitant]
  8. MIRAPEX [Concomitant]
  9. LOTREL [Concomitant]
  10. LOVENOX [Concomitant]
  11. VITAMINS NOS [Concomitant]

REACTIONS (2)
  - HYPOTENSION [None]
  - OXYGEN SATURATION DECREASED [None]
